FAERS Safety Report 4756088-1 (Version None)
Quarter: 2005Q3

REPORT INFORMATION
  Report Type: 
  Country: None (occurrence: None)
  Receive Date: 20050830
  Receipt Date: 20050819
  Transmission Date: 20060218
  Serious: Yes (Other)
  Sender: FDA-Public Use
  Company Number: PHBS2005BY12138

PATIENT
  Age: 60 Year
  Sex: Female

DRUGS (1)
  1. ADELPHAN-ESIDREX [Suspect]
     Dosage: 50 TABLETS/MONTHS
     Route: 048

REACTIONS (3)
  - BLOOD PRESSURE DECREASED [None]
  - BLOOD PRESSURE INCREASED [None]
  - CONVULSION [None]
